FAERS Safety Report 6467470-9 (Version None)
Quarter: 2009Q4

REPORT INFORMATION
  Report Type: 
  Country: None (occurrence: None)
  Receive Date: 20091202
  Receipt Date: 20091123
  Transmission Date: 20100525
  Serious: Yes (Hospitalization)
  Sender: FDA-Public Use
  Company Number: Z0002219A

PATIENT
  Sex: Male
  Weight: 83 kg

DRUGS (3)
  1. OFATUMUMAB [Suspect]
     Route: 042
     Dates: start: 20091013
  2. FLUDARABINE [Suspect]
     Route: 042
     Dates: start: 20091013
  3. CYCLOPHOSPHAMIDE [Suspect]
     Route: 042
     Dates: start: 20091013

REACTIONS (1)
  - PNEUMONIA [None]
